FAERS Safety Report 7130886-1 (Version None)
Quarter: 2010Q4

REPORT INFORMATION
  Report Type: 
  Country: None (occurrence: None)
  Receive Date: 20101101
  Receipt Date: 20100910
  Transmission Date: 20110411
  Serious: No
  Sender: FDA-Public Use
  Company Number: 2010-08997

PATIENT
  Age: 61 Year
  Sex: Male
  Weight: 56.7 kg

DRUGS (3)
  1. RAPAFLO [Suspect]
     Indication: HYPERTONIC BLADDER
     Dosage: 8 MG AT NIGHT, ORAL, 1 CAPSULE WITH DINNER DAILY
     Route: 048
     Dates: start: 20100701, end: 20100730
  2. RAPAFLO [Suspect]
     Indication: HYPERTONIC BLADDER
     Dosage: 8 MG AT NIGHT, ORAL, 1 CAPSULE WITH DINNER DAILY
     Route: 048
     Dates: start: 20100731
  3. LITHIUM [Concomitant]

REACTIONS (2)
  - DRUG INEFFECTIVE [None]
  - EJACULATION FAILURE [None]
